FAERS Safety Report 4588500-5 (Version None)
Quarter: 2005Q1

REPORT INFORMATION
  Report Type: 
  Country: None (occurrence: None)
  Receive Date: 20050215
  Receipt Date: 20050215
  Transmission Date: 20050727
  Serious: Yes (Hospitalization)
  Sender: FDA-Public Use
  Company Number: None

PATIENT
  Sex: Female

DRUGS (1)
  1. OMNIPAQUE 140 [Suspect]
     Dates: start: 20041112, end: 20041112

REACTIONS (2)
  - CONTRAST MEDIA REACTION [None]
  - DYSPNOEA [None]
